FAERS Safety Report 23158831 (Version 2)
Quarter: 2023Q4

REPORT INFORMATION
  Report Type: Spontaneous
  Country: US (occurrence: US)
  Receive Date: 20231108
  Receipt Date: 20231122
  Transmission Date: 20240109
  Serious: Yes (Other)
  Sender: FDA-Public Use
  Company Number: US-ASTELLAS-2023US033098

PATIENT
  Age: 92 Year
  Sex: Female

DRUGS (4)
  1. MYRBETRIQ [Suspect]
     Active Substance: MIRABEGRON
     Indication: Hypertonic bladder
     Route: 048
     Dates: start: 20231006, end: 202310
  2. OXYBUTYNIN [Concomitant]
     Active Substance: OXYBUTYNIN
     Indication: Product used for unknown indication
     Route: 048
  3. OXYBUTYNIN [Concomitant]
     Active Substance: OXYBUTYNIN
     Route: 048
  4. OXYBUTYNIN [Concomitant]
     Active Substance: OXYBUTYNIN
     Route: 048

REACTIONS (7)
  - Body temperature fluctuation [Recovering/Resolving]
  - Lung disorder [Recovering/Resolving]
  - Pulse abnormal [Recovering/Resolving]
  - Dyspnoea [Recovering/Resolving]
  - Pulmonary oedema [Recovering/Resolving]
  - Rash [Recovering/Resolving]
  - Insomnia [Recovering/Resolving]

NARRATIVE: CASE EVENT DATE: 20231011
